FAERS Safety Report 13967603 (Version 1)
Quarter: 2017Q3

REPORT INFORMATION
  Report Type: Spontaneous
  Country: JP (occurrence: JP)
  Receive Date: 20170914
  Receipt Date: 20170914
  Transmission Date: 20171128
  Serious: Yes (Other)
  Sender: FDA-Public Use
  Company Number: JP-ELI_LILLY_AND_COMPANY-JP201709003511

PATIENT
  Age: 72 Year
  Sex: Female

DRUGS (5)
  1. CALCIUM FOLINATE [Concomitant]
     Active Substance: LEUCOVORIN CALCIUM
     Indication: RECTAL CANCER
     Dosage: UNK UNK, UNKNOWN
     Route: 065
     Dates: start: 201503
  2. IRINOTECAN [Concomitant]
     Active Substance: IRINOTECAN
     Indication: RECTAL CANCER
     Dosage: UNK UNK, UNKNOWN
     Route: 065
     Dates: start: 201503
  3. AVASTIN [Concomitant]
     Active Substance: BEVACIZUMAB
     Indication: RECTAL CANCER
     Dosage: UNK UNK, UNKNOWN
     Route: 065
  4. ERBITUX [Suspect]
     Active Substance: CETUXIMAB
     Indication: RECTAL CANCER
     Dosage: UNK UNK, UNKNOWN
     Route: 041
     Dates: start: 201503
  5. 5-FU                               /00098801/ [Concomitant]
     Active Substance: FLUOROURACIL
     Indication: RECTAL CANCER
     Dosage: UNK UNK, UNKNOWN
     Route: 065
     Dates: start: 201503

REACTIONS (4)
  - Post procedural complication [Unknown]
  - Haemorrhagic diathesis [Unknown]
  - Off label use [Unknown]
  - Petechiae [Unknown]
